FAERS Safety Report 17536394 (Version 1)
Quarter: 2020Q1

REPORT INFORMATION
  Report Type: Spontaneous
  Country: ES (occurrence: ES)
  Receive Date: 20200313
  Receipt Date: 20200313
  Transmission Date: 20200409
  Serious: Yes (Hospitalization, Other)
  Sender: FDA-Public Use
  Company Number: ES-AUROBINDO-AUR-APL-2020-012422

PATIENT
  Age: 84 Year
  Sex: Female

DRUGS (2)
  1. ERTAPENEM POWDER FOR CONCENTRATE FOR SOLUTION FOR INFUSION [Suspect]
     Active Substance: ERTAPENEM
     Indication: PNEUMONIA KLEBSIELLA
     Dosage: UNK
     Route: 065
     Dates: start: 20190412, end: 20190423
  2. ERTAPENEM POWDER FOR CONCENTRATE FOR SOLUTION FOR INFUSION [Suspect]
     Active Substance: ERTAPENEM
     Indication: URINARY TRACT INFECTION BACTERIAL
     Dosage: UNK
     Route: 065

REACTIONS (5)
  - Decubitus ulcer [Unknown]
  - Clostridium difficile infection [Unknown]
  - Escherichia urinary tract infection [Unknown]
  - Product use in unapproved indication [Unknown]
  - Renal impairment [Recovering/Resolving]

NARRATIVE: CASE EVENT DATE: 2019
